FAERS Safety Report 18907705 (Version 4)
Quarter: 2021Q2

REPORT INFORMATION
  Report Type: Report from Study
  Country: None (occurrence: SE)
  Receive Date: 20210217
  Receipt Date: 20210526
  Transmission Date: 20210717
  Serious: Yes (Hospitalization, Other)
  Sender: FDA-Public Use
  Company Number: SE-ABBVIE-21K-150-3777270-00

PATIENT
  Sex: Female

DRUGS (4)
  1. DUODOPA [Suspect]
     Active Substance: CARBIDOPA\LEVODOPA
     Dosage: MORNING DOSE DECREASED FROM 5 ML TO 2.5 ML.
     Route: 050
     Dates: start: 2021, end: 2021
  2. DUODOPA [Suspect]
     Active Substance: CARBIDOPA\LEVODOPA
     Dosage: DOSES CHANGED TO: MORNING DOSE: 4.0 ML, CONTINUOUS DOSE: 2.7 ML/H, EXTRA DOSE: 1.0 ML.
     Route: 050
     Dates: start: 20210525
  3. DUODOPA [Suspect]
     Active Substance: CARBIDOPA\LEVODOPA
     Indication: PARKINSON^S DISEASE
     Dosage: THERAPY DURATION: REMAINS AT 16H
     Route: 050
     Dates: start: 20190121
  4. DUODOPA [Suspect]
     Active Substance: CARBIDOPA\LEVODOPA
     Route: 050
     Dates: start: 20210217, end: 2021

REACTIONS (7)
  - Intraventricular haemorrhage [Recovered/Resolved]
  - Excessive granulation tissue [Recovering/Resolving]
  - Freezing phenomenon [Recovering/Resolving]
  - Device occlusion [Recovered/Resolved]
  - Underdose [Unknown]
  - Hospitalisation [Not Recovered/Not Resolved]
  - Motor dysfunction [Unknown]
